FAERS Safety Report 21003379 (Version 1)
Quarter: 2022Q2

REPORT INFORMATION
  Report Type: Spontaneous
  Country: US (occurrence: None)
  Receive Date: 20220623
  Receipt Date: 20220623
  Transmission Date: 20220720
  Serious: Yes (Other)
  Sender: FDA-Public Use
  Company Number: None

PATIENT
  Age: 60 Year
  Sex: Female
  Weight: 54 kg

DRUGS (9)
  1. OFEV [Suspect]
     Active Substance: NINTEDANIB
     Indication: Interstitial lung disease
     Dosage: FREQUENCY : TWICE A DAY;?
     Route: 048
     Dates: start: 20200320
  2. LOSARTAN [Concomitant]
     Active Substance: LOSARTAN
  3. METFORMIN [Concomitant]
     Active Substance: METFORMIN HYDROCHLORIDE
  4. METOCLOPRAMIDE [Concomitant]
     Active Substance: METOCLOPRAMIDE
  5. MYCOPHENOLIC ACID [Concomitant]
     Active Substance: MYCOPHENOLIC ACID
  6. SUMATRIPTAN [Concomitant]
     Active Substance: SUMATRIPTAN
  7. ASPIRIN [Concomitant]
     Active Substance: ASPIRIN
  8. PIOGLITAZONE [Concomitant]
     Active Substance: PIOGLITAZONE
  9. GLIPIZIDE [Concomitant]
     Active Substance: GLIPIZIDE

REACTIONS (3)
  - Systemic scleroderma [None]
  - Pulmonary fibrosis [None]
  - Proteinuria [None]

NARRATIVE: CASE EVENT DATE: 20211201
